FAERS Safety Report 4730305-6 (Version None)
Quarter: 2005Q3

REPORT INFORMATION
  Report Type: 
  Country: None (occurrence: None)
  Receive Date: 20050729
  Receipt Date: 20050720
  Transmission Date: 20060218
  Serious: Yes (Hospitalization)
  Sender: FDA-Public Use
  Company Number: 2005AL002500

PATIENT
  Age: 61 Year
  Sex: Male
  Weight: 102.9665 kg

DRUGS (5)
  1. ALPRAZOLAM [Suspect]
     Indication: ANXIETY
     Dosage: 0.5 MG; TID; PO
     Route: 048
     Dates: start: 20041101, end: 20050101
  2. ALPRAZOLAM [Suspect]
     Indication: INSOMNIA
     Dosage: 0.5 MG; TID; PO
     Route: 048
     Dates: start: 20041101, end: 20050101
  3. ALCOHOL [Suspect]
  4. INSULIN [Concomitant]
  5. GLYBURIDE [Concomitant]

REACTIONS (20)
  - ABNORMAL DREAMS [None]
  - ALCOHOL INTERACTION [None]
  - AMNESIA [None]
  - BALANCE DISORDER [None]
  - BLOOD ALCOHOL INCREASED [None]
  - DELUSION [None]
  - DISORIENTATION [None]
  - FALL [None]
  - GUN SHOT WOUND [None]
  - HALLUCINATION [None]
  - HALLUCINATION, VISUAL [None]
  - ILLUSION [None]
  - INTENTIONAL SELF-INJURY [None]
  - IRRITABILITY [None]
  - MEMORY IMPAIRMENT [None]
  - NIGHTMARE [None]
  - OFF LABEL USE [None]
  - PANIC DISORDER [None]
  - SUICIDE ATTEMPT [None]
  - THINKING ABNORMAL [None]
